FAERS Safety Report 4385341-9 (Version None)
Quarter: 2004Q2

REPORT INFORMATION
  Report Type: 
  Country: None (occurrence: None)
  Receive Date: 20040628
  Receipt Date: 20040212
  Transmission Date: 20050107
  Serious: Yes (Death)
  Sender: FDA-Public Use
  Company Number: PHHO2004ES02291

PATIENT
  Age: 45 Year
  Sex: Male

DRUGS (1)
  1. NEORAL [Suspect]
     Indication: LIVER TRANSPLANT
     Dosage: 175 MG / DAY
     Route: 048
     Dates: start: 20010410

REACTIONS (1)
  - ACUTE MYOCARDIAL INFARCTION [None]
